FAERS Safety Report 8163259-3 (Version None)
Quarter: 2012Q1

REPORT INFORMATION
  Report Type: 
  Country: None (occurrence: None)
  Receive Date: 20120224
  Receipt Date: 20110825
  Transmission Date: 20120608
  Serious: No
  Sender: FDA-Public Use
  Company Number: US-PFIZER INC-K201101000

PATIENT
  Sex: Female
  Weight: 83.9 kg

DRUGS (4)
  1. OXYCODONE [Concomitant]
     Indication: PAIN
     Dosage: 5 MG, AS NEEDED
  2. FLECTOR [Suspect]
     Indication: PAIN
     Dosage: PRN
     Route: 061
     Dates: start: 20090101
  3. FLECTOR [Suspect]
     Indication: TENDONITIS
  4. OPANA [Concomitant]
     Indication: PAIN
     Dosage: 5 MG, 2X/DAY

REACTIONS (4)
  - KYPHOSIS [None]
  - MUSCLE SPASMS [None]
  - PAIN [None]
  - SPINAL DISORDER [None]
